FAERS Safety Report 21937101 (Version 1)
Quarter: 2023Q1

REPORT INFORMATION
  Report Type: Spontaneous
  Country: US (occurrence: None)
  Receive Date: 20230131
  Receipt Date: 20230131
  Transmission Date: 20230418
  Serious: No
  Sender: FDA-Public Use
  Company Number: None

PATIENT
  Age: 37 Year
  Sex: Female
  Weight: 122 kg

DRUGS (1)
  1. FERUMOXYTOL [Suspect]
     Active Substance: FERUMOXYTOL
     Dosage: OTHER FREQUENCY : ONE TIME;?
     Route: 042

REACTIONS (5)
  - Panic attack [None]
  - Flushing [None]
  - Feeling abnormal [None]
  - Sensation of foreign body [None]
  - Infusion related reaction [None]

NARRATIVE: CASE EVENT DATE: 20230131
